FAERS Safety Report 8923947 (Version 1)
Quarter: 2012Q4

REPORT INFORMATION
  Report Type: 
  Country: JP (occurrence: JP)
  Receive Date: 20121126
  Receipt Date: 20121126
  Transmission Date: 20130627
  Serious: Yes (Hospitalization, Other)
  Sender: FDA-Public Use
  Company Number: JP-NAPPMUNDI-GBR-2012-0012179

PATIENT
  Sex: Female

DRUGS (2)
  1. OXYCODONE HCL [Suspect]
     Indication: BACK PAIN
     Dosage: 20 mg, UNK
     Route: 048
  2. OXYCODONE HCL IR POWDER 0.5% [Suspect]
     Indication: BACK PAIN
     Dosage: 30 mg, UNK
     Route: 048

REACTIONS (5)
  - Respiratory depression [Recovering/Resolving]
  - Nausea [Unknown]
  - Diarrhoea [Unknown]
  - Unresponsive to stimuli [Unknown]
  - Hypotension [Unknown]
